FAERS Safety Report 8388297 (Version 3)
Quarter: 2018Q2

REPORT INFORMATION
  Report Type: Spontaneous
  Country: US (occurrence: US)
  Receive Date: 20120203
  Receipt Date: 20180420
  Transmission Date: 20180711
  Serious: No
  Sender: FDA-Public Use
  Company Number: US-GLAXOSMITHKLINE-A0936526A

PATIENT
  Sex: Female

DRUGS (2)
  1. LAMOTRIGINE TABLET [Suspect]
     Active Substance: LAMOTRIGINE
     Indication: AFFECTIVE DISORDER
     Route: 048
  2. LAMICTAL [Suspect]
     Active Substance: LAMOTRIGINE
     Indication: AFFECTIVE DISORDER
     Route: 065

REACTIONS (9)
  - Muscular weakness [Unknown]
  - Laceration [Unknown]
  - Concussion [Unknown]
  - Muscle disorder [Unknown]
  - Emergency care [Unknown]
  - Fall [Unknown]
  - Drug ineffective [Unknown]
  - Joint lock [Unknown]
  - Product substitution issue [Unknown]
